FAERS Safety Report 4819543-1 (Version None)
Quarter: 2005Q4

REPORT INFORMATION
  Report Type: 
  Country: None (occurrence: None)
  Receive Date: 20051102
  Receipt Date: 20051021
  Transmission Date: 20060501
  Serious: Yes (Hospitalization, Other)
  Sender: FDA-Public Use
  Company Number: HQWYE228825OCT05

PATIENT
  Age: 4 Year
  Sex: Male

DRUGS (1)
  1. PHENERGAN [Suspect]
     Indication: VIRAL INFECTION
     Dosage: 1 SUPPOS 1X PER 1 DAY, RECTAL
     Route: 054
     Dates: start: 20001201, end: 20001201

REACTIONS (4)
  - ABNORMAL BEHAVIOUR [None]
  - AGGRESSION [None]
  - CEREBROVASCULAR ACCIDENT [None]
  - SUICIDAL IDEATION [None]
